FAERS Safety Report 11560501 (Version 1)
Quarter: 2015Q3

REPORT INFORMATION
  Report Type: Spontaneous
  Country: US (occurrence: US)
  Receive Date: 20150916
  Receipt Date: 20150916
  Transmission Date: 20151125
  Serious: No
  Sender: FDA-Public Use
  Company Number: US-ELI_LILLY_AND_COMPANY-US200809006171

PATIENT
  Age: 61 Year
  Sex: Female

DRUGS (2)
  1. FORTEO [Suspect]
     Active Substance: TERIPARATIDE
     Indication: OSTEOPOROSIS
     Dosage: 20 UG, DAILY (1/D)
     Dates: start: 20080730, end: 20080920
  2. SIMVASTATIN. [Concomitant]
     Active Substance: SIMVASTATIN

REACTIONS (11)
  - Injection site irritation [Recovered/Resolved]
  - Dizziness [Unknown]
  - Diabetes mellitus [Unknown]
  - Headache [Recovered/Resolved]
  - Fatigue [Recovered/Resolved]
  - Pain in extremity [Recovered/Resolved]
  - Abdominal discomfort [Unknown]
  - Nausea [Recovered/Resolved]
  - Feeling abnormal [Unknown]
  - Blood thyroid stimulating hormone increased [Unknown]
  - Skin irritation [Not Recovered/Not Resolved]

NARRATIVE: CASE EVENT DATE: 20080912
